FAERS Safety Report 5680951-0 (Version None)
Quarter: 2008Q1

REPORT INFORMATION
  Report Type: 
  Country: None (occurrence: None)
  Receive Date: 20080325
  Receipt Date: 20080319
  Transmission Date: 20080703
  Serious: Yes (Death, Other)
  Sender: FDA-Public Use
  Company Number: 163-21880-08020032

PATIENT
  Age: 67 Year
  Sex: Female

DRUGS (2)
  1. REVLIMID [Suspect]
     Dosage: 5 MG, 1 IN 1 D, ORAL
     Route: 048
     Dates: start: 20071208, end: 20080101
  2. REVLIMID [Suspect]
     Dates: start: 20080129, end: 20080213

REACTIONS (7)
  - BRAIN HERNIATION [None]
  - BRAIN MASS [None]
  - CEREBELLAR HAEMORRHAGE [None]
  - MALIGNANT NEOPLASM PROGRESSION [None]
  - MYELODYSPLASTIC SYNDROME [None]
  - NERVOUS SYSTEM DISORDER [None]
  - PANCYTOPENIA [None]
